FAERS Safety Report 10160327 (Version 1)
Quarter: 2014Q2

REPORT INFORMATION
  Report Type: Spontaneous
  Country: US (occurrence: US)
  Receive Date: 20140508
  Receipt Date: 20140508
  Transmission Date: 20141212
  Serious: Yes (Hospitalization)
  Sender: FDA-Public Use
  Company Number: US-GLAXOSMITHKLINE-A1071390A

PATIENT
  Age: 62 Year
  Sex: Female

DRUGS (4)
  1. VENTOLIN [Suspect]
     Indication: BRONCHOSPASM
     Dosage: 1PUFF AS REQUIRED
     Route: 055
  2. BREO ELLIPTA [Suspect]
     Indication: ASTHMA
     Dosage: 1PUFF PER DAY
     Route: 055
     Dates: start: 201402, end: 201403
  3. ADVAIR [Concomitant]
  4. PROVENTIL [Concomitant]

REACTIONS (9)
  - Gallbladder necrosis [Recovered/Resolved]
  - Cholecystectomy [Recovered/Resolved]
  - Liver injury [Unknown]
  - Pancreatic injury [Unknown]
  - Vertigo [Recovering/Resolving]
  - Nerve compression [Not Recovered/Not Resolved]
  - Paraesthesia [Not Recovered/Not Resolved]
  - Hypoaesthesia [Not Recovered/Not Resolved]
  - Ill-defined disorder [Recovered/Resolved]
